FAERS Safety Report 11912919 (Version 1)
Quarter: 2016Q1

REPORT INFORMATION
  Report Type: Spontaneous
  Country: US (occurrence: None)
  Receive Date: 20160112
  Receipt Date: 20160112
  Transmission Date: 20160526
  Serious: Yes (Other)
  Sender: FDA-Public Use
  Company Number: None

PATIENT
  Age: 55 Year
  Sex: Female
  Weight: 70.31 kg

DRUGS (8)
  1. VITAMIN C [Concomitant]
     Active Substance: ASCORBIC ACID
  2. MEDROL DOSE PACK [Concomitant]
     Active Substance: METHYLPREDNISOLONE
  3. ARMOUR THYROID [Suspect]
     Active Substance: THYROID, PORCINE
     Indication: AUTOIMMUNE THYROIDITIS
     Route: 048
     Dates: start: 20151214, end: 20160111
  4. PROAIR HFA [Concomitant]
     Active Substance: ALBUTEROL SULFATE
  5. VITAMIN D [Concomitant]
     Active Substance: CHOLECALCIFEROL
  6. MULTI VITAMIN [Concomitant]
     Active Substance: VITAMINS
  7. BIAXIN [Concomitant]
     Active Substance: CLARITHROMYCIN
  8. FLOVENT [Concomitant]
     Active Substance: FLUTICASONE PROPIONATE

REACTIONS (10)
  - Pain in jaw [None]
  - Adrenal disorder [None]
  - Ear pain [None]
  - Dyspnoea [None]
  - Cardiac disorder [None]
  - Heart rate increased [None]
  - Chest discomfort [None]
  - Hypertension [None]
  - Pain in extremity [None]
  - Myocardial infarction [None]

NARRATIVE: CASE EVENT DATE: 20160110
